FAERS Safety Report 24955709 (Version 1)
Quarter: 2025Q1

REPORT INFORMATION
  Report Type: Spontaneous
  Country: CN (occurrence: CN)
  Receive Date: 20250211
  Receipt Date: 20250211
  Transmission Date: 20250409
  Serious: Yes (Other)
  Sender: JOHNSON AND JOHNSON
  Company Number: CN-JNJFOC-20250212714

PATIENT

DRUGS (1)
  1. REMICADE [Suspect]
     Active Substance: INFLIXIMAB
     Indication: Crohn^s disease
     Dosage: UNIT DOSE: 5 TO 10 MG/KG
     Route: 041

REACTIONS (6)
  - Opportunistic infection [Unknown]
  - Renal impairment [Unknown]
  - Off label use [Unknown]
  - Therapeutic response unexpected [Unknown]
  - Infusion related reaction [Unknown]
  - Hepatic function abnormal [Unknown]
